FAERS Safety Report 7212305-X (Version None)
Quarter: 2011Q1

REPORT INFORMATION
  Report Type: 
  Country: None (occurrence: None)
  Receive Date: 20110106
  Receipt Date: 20110103
  Transmission Date: 20110831
  Serious: Yes (Death)
  Sender: FDA-Public Use
  Company Number: PHHY2010CA89218

PATIENT
  Sex: Female

DRUGS (10)
  1. RAMIPRIL [Concomitant]
  2. FUROSEMIDE [Concomitant]
  3. PREDNISONE [Concomitant]
  4. FENTANYL [Concomitant]
  5. ACLASTA [Suspect]
     Indication: OSTEOPOROSIS
     Dosage: UNK
     Dates: start: 20100322
  6. DILTIAZEM [Concomitant]
  7. NEXIUM [Concomitant]
  8. ATROVENT [Concomitant]
  9. SALBUTAMOL [Concomitant]
  10. FLOVENT [Concomitant]

REACTIONS (1)
  - DEATH [None]
